FAERS Safety Report 10463691 (Version 2)
Quarter: 2014Q3

REPORT INFORMATION
  Report Type: Spontaneous
  Country: JP (occurrence: JP)
  Receive Date: 20140919
  Receipt Date: 20140919
  Transmission Date: 20150326
  Serious: Yes (Hospitalization)
  Sender: FDA-Public Use
  Company Number: JP-EISAI MEDICAL RESEARCH-E2020-14415-SPO-JP

PATIENT
  Age: 80 Year
  Sex: Male

DRUGS (4)
  1. ARICEPT [Suspect]
     Active Substance: DONEPEZIL HYDROCHLORIDE
     Route: 048
     Dates: start: 20140813, end: 20140813
  2. EPADEL [Concomitant]
     Active Substance: ICOSAPENT
     Indication: PRODUCT USED FOR UNKNOWN INDICATION
     Dosage: 900 MG DAILY
     Route: 048
     Dates: end: 20140813
  3. ARICEPT [Suspect]
     Active Substance: DONEPEZIL HYDROCHLORIDE
     Indication: DEMENTIA ALZHEIMER^S TYPE
     Route: 048
     Dates: end: 20140812
  4. ARICEPT [Suspect]
     Active Substance: DONEPEZIL HYDROCHLORIDE
     Dosage: UNKNOWN
     Route: 048
     Dates: start: 2014

REACTIONS (6)
  - Asthenia [Recovered/Resolved]
  - Yawning [Recovered/Resolved]
  - Hyperhidrosis [Recovered/Resolved]
  - Headache [Recovered/Resolved]
  - Vomiting [Recovered/Resolved]
  - Accidental overdose [Recovered/Resolved]

NARRATIVE: CASE EVENT DATE: 20140813
